FAERS Safety Report 4485021-5 (Version None)
Quarter: 2004Q3

REPORT INFORMATION
  Report Type: 
  Country: None (occurrence: None)
  Receive Date: 20040921
  Receipt Date: 20030828
  Transmission Date: 20050211
  Serious: Yes (Hospitalization)
  Sender: FDA-Public Use
  Company Number: 163-20785-03090368

PATIENT
  Age: 53 Year
  Sex: Female

DRUGS (2)
  1. THALOMID [Suspect]
     Indication: MULTIPLE MYELOMA
     Dosage: 200 MG, QHS, ORAL
     Route: 048
     Dates: start: 20030206
  2. PS-341 (INJECTION) [Suspect]
     Indication: MULTIPLE MYELOMA
     Dosage: 1 MG/M2, DAYS 1,4,8,11 OF A 21-DAY CYCLE, INTRAVENOUS
     Route: 042
     Dates: start: 20030102, end: 20030725

REACTIONS (2)
  - HUMERUS FRACTURE [None]
  - PATHOLOGICAL FRACTURE [None]
